FAERS Safety Report 5092386-2 (Version None)
Quarter: 2006Q3

REPORT INFORMATION
  Report Type: 
  Country: None (occurrence: None)
  Receive Date: 20060825
  Receipt Date: 20060811
  Transmission Date: 20061208
  Serious: Yes (Death)
  Sender: FDA-Public Use
  Company Number: 147045USA

PATIENT
  Age: 36 Year
  Sex: Female
  Weight: 88.4514 kg

DRUGS (6)
  1. DIAZEPAM [Suspect]
  2. IMIPRAMINE [Suspect]
  3. METHADONE HCL [Suspect]
  4. BUDEPRION [Suspect]
     Dosage: 200 MILLIGRAM QD
     Dates: start: 20050901
  5. DESIPRAMINE HCL [Suspect]
  6. QUETIAPINE [Suspect]
     Dosage: 60 MILLIGRAM QD
     Dates: start: 20020101

REACTIONS (7)
  - ACCIDENTAL OVERDOSE [None]
  - DRUG TOXICITY [None]
  - HEPATIC FAILURE [None]
  - HEPATIC STEATOSIS [None]
  - INTENTIONAL DRUG MISUSE [None]
  - RENAL FAILURE [None]
  - ROAD TRAFFIC ACCIDENT [None]
